FAERS Safety Report 10553789 (Version 2)
Quarter: 2014Q4

REPORT INFORMATION
  Report Type: Report from Study
  Country: GB (occurrence: GB)
  Receive Date: 20141030
  Receipt Date: 20141208
  Transmission Date: 20150529
  Serious: Yes (Hospitalization, Other)
  Sender: FDA-Public Use
  Company Number: GB-MYLANLABS-2014M1009092

PATIENT

DRUGS (3)
  1. TRAMETINIB [Suspect]
     Active Substance: TRAMETINIB
     Indication: METASTASIS
     Dosage: 2 MG, QD
     Route: 048
     Dates: start: 20140704, end: 20140705
  2. TRAMETINIB [Suspect]
     Active Substance: TRAMETINIB
     Dosage: UNK
     Route: 048
     Dates: start: 20140707
  3. PACLITAXEL. [Suspect]
     Active Substance: PACLITAXEL
     Indication: METASTASIS
     Dosage: 160 MG, QW
     Route: 042
     Dates: start: 20140704

REACTIONS (4)
  - Varicella [Unknown]
  - Pathological fracture [Recovered/Resolved with Sequelae]
  - Presyncope [Recovered/Resolved]
  - Fall [Recovered/Resolved]

NARRATIVE: CASE EVENT DATE: 20140704
